FAERS Safety Report 24326450 (Version 1)
Quarter: 2024Q3

REPORT INFORMATION
  Report Type: Spontaneous
  Country: US (occurrence: US)
  Receive Date: 20240917
  Receipt Date: 20240917
  Transmission Date: 20241016
  Serious: Yes (Other)
  Sender: SANDOZ
  Company Number: US-SANDOZ-SDZ2024US080165

PATIENT
  Age: 56 Year
  Sex: Female

DRUGS (26)
  1. ACYCLOVIR [Suspect]
     Active Substance: ACYCLOVIR
     Indication: Prophylaxis
     Route: 065
  2. ALBUTEROL SULFATE [Suspect]
     Active Substance: ALBUTEROL SULFATE
     Indication: Mycobacterium fortuitum infection
     Dosage: 2.5 MG /3 ML (0.083 %)
     Route: 065
     Dates: start: 20240716
  3. BACTRIM DS [Suspect]
     Active Substance: SULFAMETHOXAZOLE\TRIMETHOPRIM
     Indication: Mycobacterium fortuitum infection
     Dosage: 800-160MG, BID
     Route: 048
     Dates: start: 20240509
  4. CYCLOSPORINE [Suspect]
     Active Substance: CYCLOSPORINE
     Indication: Product used for unknown indication
     Dosage: 75 MG, BID
     Route: 048
     Dates: start: 20240801
  5. CELLCEPT [Suspect]
     Active Substance: MYCOPHENOLATE MOFETIL
     Indication: Product used for unknown indication
     Dosage: 250 MG, BID
     Route: 065
     Dates: start: 20240313
  6. CHOLECALCIFEROL [Suspect]
     Active Substance: CHOLECALCIFEROL
     Indication: Product used for unknown indication
     Dosage: TAKE 1 TABLET BY MOUTH DAILY
     Route: 048
  7. DELTASONE [Suspect]
     Active Substance: PREDNISONE
     Indication: Product used for unknown indication
     Dosage: 5 MG, QD, BED TIME
     Route: 048
     Dates: start: 20240327
  8. DOMPERIDONE [Suspect]
     Active Substance: DOMPERIDONE
     Indication: Product used for unknown indication
     Dosage: 10 MG, QID
     Route: 048
     Dates: start: 20240227
  9. GANCICLOVIR [Suspect]
     Active Substance: GANCICLOVIR
     Indication: Product used for unknown indication
     Route: 042
  10. LEVOTHYROXINE SODIUM [Suspect]
     Active Substance: LEVOTHYROXINE SODIUM
     Indication: Product used for unknown indication
     Dosage: 50 UG, QD (EMPTY STOMACH)
     Route: 048
  11. LETERMOVIR [Suspect]
     Active Substance: LETERMOVIR
     Indication: Prophylaxis
     Route: 065
  12. LEVAQUIN [Suspect]
     Active Substance: LEVOFLOXACIN
     Indication: Cytopenia
     Dosage: 750 MG, QD
     Route: 048
     Dates: start: 20240509
  13. MONTELUKAST [Suspect]
     Active Substance: MONTELUKAST SODIUM
     Indication: Product used for unknown indication
     Dosage: 10 MG, QD (AT BED TIME)
     Route: 048
     Dates: start: 20240206
  14. MEPRON [Suspect]
     Active Substance: ATOVAQUONE
     Indication: Mycobacterium fortuitum infection
     Dosage: 10 ML TAKE 10 ML BY MOUTH DAILY
     Route: 048
     Dates: start: 20240812
  15. NORVASC [Suspect]
     Active Substance: AMLODIPINE BESYLATE
     Indication: Mycobacterium fortuitum infection
     Dosage: 5 MG, BID
     Route: 048
     Dates: start: 20240827
  16. PEPCID [Suspect]
     Active Substance: FAMOTIDINE
     Indication: Product used for unknown indication
     Dosage: 20 MG, QD
     Route: 048
     Dates: start: 20240212
  17. POSACONAZOLE [Suspect]
     Active Substance: POSACONAZOLE
     Indication: Product used for unknown indication
     Dosage: UNK
     Route: 065
     Dates: start: 2022, end: 202407
  18. PRAVACHOL [Suspect]
     Active Substance: PRAVASTATIN SODIUM
     Indication: Product used for unknown indication
     Dosage: 10 MG, QD
     Route: 048
     Dates: start: 20231027
  19. PREVACID SOLUTAB [Suspect]
     Active Substance: LANSOPRAZOLE
     Indication: Product used for unknown indication
     Dosage: 30 MG, BID
     Route: 048
     Dates: start: 20240819
  20. TOBI [Suspect]
     Active Substance: TOBRAMYCIN
     Indication: Product used for unknown indication
     Dosage: 5 ML, BID (TAKE 5 ML BY NEBULIZATION EVERY 12 HOURS USE IN 1 MONTH ON MEDICATION, 1 MONTH OFF MEDICA
     Route: 065
     Dates: start: 20240411
  21. ULTOMIRIS [Suspect]
     Active Substance: RAVULIZUMAB-CWVZ
     Indication: Product used for unknown indication
     Dosage: INJECT 3,300 MG INTO THE VEIN EVERY 6 WEEKS - INTRAVENOUS
     Route: 042
  22. VALGANCICLOVIR [Suspect]
     Active Substance: VALGANCICLOVIR
     Indication: Product used for unknown indication
     Dosage: 450 MG, QD
     Route: 048
     Dates: start: 20240425
  23. VEETIDS [Suspect]
     Active Substance: PENICILLIN V POTASSIUM
     Indication: Product used for unknown indication
     Dosage: 500 MG, BID
     Route: 065
     Dates: start: 20240212
  24. VITAMIN D3 [Suspect]
     Active Substance: CHOLECALCIFEROL
     Indication: Product used for unknown indication
     Dosage: 125 UG, QD
     Route: 048
     Dates: start: 20231113
  25. WIXELA INHUB [Suspect]
     Active Substance: FLUTICASONE PROPIONATE\SALMETEROL XINAFOATE
     Indication: Product used for unknown indication
     Dosage: 250-50MCG/DOSE
     Route: 055
     Dates: start: 20240904
  26. ZORTRESS [Suspect]
     Active Substance: EVEROLIMUS
     Indication: Product used for unknown indication
     Dosage: TAKE 3 TABLETS IN THE AM AND TAKE 2 TABLETS IN THE PM. TOTAL DOSE: AM 1.5MG / PM 1 MG. TAKE 12 HOURS
     Route: 048
     Dates: start: 20240821

REACTIONS (5)
  - Cytopenia [Not Recovered/Not Resolved]
  - Hot flush [Not Recovered/Not Resolved]
  - Night sweats [Not Recovered/Not Resolved]
  - Urine albumin/creatinine ratio [Unknown]
  - Extra dose administered [Unknown]
